FAERS Safety Report 7554778-9 (Version None)
Quarter: 2011Q2

REPORT INFORMATION
  Report Type: 
  Country: None (occurrence: None)
  Receive Date: 20110617
  Receipt Date: 20110613
  Transmission Date: 20111010
  Serious: Yes (Death)
  Sender: FDA-Public Use
  Company Number: MX-BRISTOL-MYERS SQUIBB COMPANY-14624506

PATIENT
  Age: 54 Year
  Sex: Male

DRUGS (5)
  1. DIGOXIN [Concomitant]
     Dates: start: 20040901, end: 20090508
  2. WARFARIN SODIUM [Suspect]
     Indication: THROMBOSIS PROPHYLAXIS
     Route: 048
     Dates: start: 20080207, end: 20090508
  3. FUROSEMIDE [Concomitant]
     Dates: start: 20040901, end: 20090508
  4. PLACEBO [Suspect]
     Indication: THROMBOSIS PROPHYLAXIS
     Route: 048
     Dates: start: 20080207, end: 20090508
  5. SPIRONOLACTONE [Concomitant]
     Dates: start: 20040901, end: 20090508

REACTIONS (1)
  - ACUTE MYOCARDIAL INFARCTION [None]
